FAERS Safety Report 22636341 (Version 1)
Quarter: 2023Q2

REPORT INFORMATION
  Report Type: Spontaneous
  Country: US (occurrence: US)
  Receive Date: 20230623
  Receipt Date: 20230623
  Transmission Date: 20230722
  Serious: Yes (Other)
  Sender: FDA-Public Use
  Company Number: US-MYLANLABS-2023M1065421

PATIENT
  Age: 13 Year
  Sex: Female

DRUGS (6)
  1. LEVETIRACETAM [Suspect]
     Active Substance: LEVETIRACETAM
     Indication: Generalised tonic-clonic seizure
     Dosage: 2500 MILLIGRAM, QD
     Route: 065
     Dates: start: 201504
  2. LEVETIRACETAM [Suspect]
     Active Substance: LEVETIRACETAM
     Dosage: UNK ( LEVETIRACETAM WAS COMPLETELY TAPERED)
     Route: 065
  3. LACOSAMIDE [Suspect]
     Active Substance: LACOSAMIDE
     Indication: Generalised tonic-clonic seizure
     Dosage: UNK UNK, QD (UP TO 400MG DAILY)
     Route: 065
     Dates: start: 201504
  4. LACOSAMIDE [Suspect]
     Active Substance: LACOSAMIDE
     Dosage: UNK ( LACOSAMIDE WAS TAPERED SLOWLY OVER THE FOLLOWING 8 WEEKS)
     Route: 065
  5. CLOBAZAM [Suspect]
     Active Substance: CLOBAZAM
     Indication: Generalised tonic-clonic seizure
     Dosage: UNK, QD (TITRATED UP TO 5MG DAILY)
     Route: 065
     Dates: start: 2015
  6. CLOBAZAM [Suspect]
     Active Substance: CLOBAZAM
     Dosage: UNK (CLOBAZAM WAS ALSO TAPERED OVER A 10-WEEK PERIOD)
     Route: 065

REACTIONS (2)
  - Automatism epileptic [Recovered/Resolved]
  - Depressed level of consciousness [Recovered/Resolved]

NARRATIVE: CASE EVENT DATE: 20150101
